FAERS Safety Report 7877642-4 (Version None)
Quarter: 2011Q4

REPORT INFORMATION
  Report Type: 
  Country: None (occurrence: None)
  Receive Date: 20111031
  Receipt Date: 20111018
  Transmission Date: 20120403
  Serious: Yes (Life-Threatening, Hospitalization, Disabling, Other)
  Sender: FDA-Public Use
  Company Number: ET-GILEAD-2010-0030260

PATIENT
  Age: 35 Year
  Sex: Male

DRUGS (2)
  1. BACTRIM [Concomitant]
     Indication: PROPHYLAXIS
     Route: 048
     Dates: start: 20091001
  2. ATRIPLA [Suspect]
     Indication: HIV INFECTION
     Route: 048
     Dates: start: 20091005, end: 20100520

REACTIONS (3)
  - VOMITING [None]
  - RENAL FAILURE ACUTE [None]
  - ANAEMIA [None]
